FAERS Safety Report 6942125-2 (Version None)
Quarter: 2010Q3

REPORT INFORMATION
  Report Type: 
  Country: None (occurrence: None)
  Receive Date: 20100823
  Receipt Date: 20100817
  Transmission Date: 20110219
  Serious: Yes (Other)
  Sender: FDA-Public Use
  Company Number: 20108998

PATIENT
  Age: 54 Year
  Sex: Male

DRUGS (3)
  1. LIORESAL [Suspect]
     Indication: MUSCLE SPASTICITY
     Dosage: MCG, DAILY, INTRATHECAL
     Route: 037
  2. DILAUDID [Concomitant]
  3. MARCAINE [Concomitant]

REACTIONS (3)
  - INCISION SITE BLISTER [None]
  - INCISION SITE PAIN [None]
  - SEROMA [None]
